FAERS Safety Report 20226602 (Version 12)
Quarter: 2023Q1

REPORT INFORMATION
  Report Type: Other
  Country: GB (occurrence: None)
  Receive Date: 20211224
  Receipt Date: 20230321
  Transmission Date: 20230418
  Serious: Yes (Hospitalization)
  Sender: FDA-Public Use
  Company Number: GB-ROCHE-2977880

PATIENT
  Age: 30 Year
  Sex: Male
  Weight: 65 kg

DRUGS (19)
  1. OCRELIZUMAB [Suspect]
     Active Substance: OCRELIZUMAB
     Indication: Relapsing-remitting multiple sclerosis
     Dosage: ON 09/JUN/2021, HE RECEIVED THE MOST RECENT DOSE OF OCRELIZUMAB (600 MG) PRIOR TO SERIOUS ADVERSE EV
     Route: 042
     Dates: start: 20190423, end: 20190423
  2. OCRELIZUMAB [Suspect]
     Active Substance: OCRELIZUMAB
     Dosage: ON 09/JUN/2021, HE RECEIVED THE MOST RECENT DOSE OF OCRELIZUMAB (600 MG) PRIOR TO SERIOUS ADVERSE EV
     Route: 042
     Dates: start: 20190507, end: 20190507
  3. OCRELIZUMAB [Suspect]
     Active Substance: OCRELIZUMAB
     Dosage: ON 09/JUN/2021, HE RECEIVED THE MOST RECENT DOSE OF OCRELIZUMAB (600 MG) PRIOR TO SERIOUS ADVERSE EV
     Route: 042
     Dates: start: 20191023, end: 20191023
  4. OCRELIZUMAB [Suspect]
     Active Substance: OCRELIZUMAB
     Dosage: ON 09/JUN/2021, HE RECEIVED THE MOST RECENT DOSE OF OCRELIZUMAB (600 MG) PRIOR TO SERIOUS ADVERSE EV
     Route: 042
     Dates: start: 20200616, end: 20200616
  5. OCRELIZUMAB [Suspect]
     Active Substance: OCRELIZUMAB
     Dosage: ON 09/JUN/2021, HE RECEIVED THE MOST RECENT DOSE OF OCRELIZUMAB (600 MG) PRIOR TO SERIOUS ADVERSE EV
     Route: 042
     Dates: start: 20201216, end: 20201216
  6. OCRELIZUMAB [Suspect]
     Active Substance: OCRELIZUMAB
     Dosage: ON 09/JUN/2021, HE RECEIVED THE MOST RECENT DOSE OF OCRELIZUMAB (600 MG) PRIOR TO SERIOUS ADVERSE EV
     Route: 042
     Dates: start: 20210609, end: 20210609
  7. OCRELIZUMAB [Suspect]
     Active Substance: OCRELIZUMAB
     Dosage: ON 09/JUN/2021, HE RECEIVED THE MOST RECENT DOSE OF OCRELIZUMAB (600 MG) PRIOR TO SERIOUS ADVERSE EV
     Route: 042
     Dates: start: 20220114, end: 20220114
  8. OCRELIZUMAB [Suspect]
     Active Substance: OCRELIZUMAB
     Dosage: ON 09/JUN/2021, HE RECEIVED THE MOST RECENT DOSE OF OCRELIZUMAB (600 MG) PRIOR TO SERIOUS ADVERSE EV
     Route: 042
     Dates: start: 20220729, end: 20220729
  9. OCRELIZUMAB [Suspect]
     Active Substance: OCRELIZUMAB
     Dosage: ON 09/JUN/2021, HE RECEIVED THE MOST RECENT DOSE OF OCRELIZUMAB (600 MG) PRIOR TO SERIOUS ADVERSE EV
     Route: 042
     Dates: start: 20230130, end: 20230130
  10. DALFAMPRIDINE [Concomitant]
     Active Substance: DALFAMPRIDINE
     Route: 048
     Dates: start: 201804
  11. FLUOXETINE [Concomitant]
     Active Substance: FLUOXETINE HYDROCHLORIDE
     Indication: Depression
     Route: 048
     Dates: start: 201808
  12. ENOXAPARIN [Concomitant]
     Active Substance: ENOXAPARIN
     Indication: Prophylaxis
     Route: 058
     Dates: start: 20211205
  13. DALFAMPRIDINE [Concomitant]
     Active Substance: DALFAMPRIDINE
     Indication: Relapsing-remitting multiple sclerosis
     Route: 048
  14. ZOPICLONE [Concomitant]
     Active Substance: ZOPICLONE
     Indication: Insomnia
     Route: 048
     Dates: start: 20211206, end: 20211206
  15. ZOPICLONE [Concomitant]
     Active Substance: ZOPICLONE
     Route: 048
     Dates: start: 20211208, end: 20211208
  16. METHYLPREDNISOLONE [Concomitant]
     Active Substance: METHYLPREDNISOLONE
     Route: 042
     Dates: start: 20220114, end: 20220114
  17. METHYLPREDNISOLONE [Concomitant]
     Active Substance: METHYLPREDNISOLONE
     Route: 042
     Dates: start: 20230130, end: 20230130
  18. CHLORPHENIRAMINE MALEATE [Concomitant]
     Active Substance: CHLORPHENIRAMINE MALEATE
     Route: 042
     Dates: start: 20220114, end: 20220114
  19. CHLORPHENIRAMINE MALEATE [Concomitant]
     Active Substance: CHLORPHENIRAMINE MALEATE
     Route: 042
     Dates: start: 20230130, end: 20230130

REACTIONS (6)
  - Pyrexia [Recovered/Resolved]
  - Vomiting [Recovered/Resolved]
  - Pneumonia [Recovered/Resolved]
  - Fall [Unknown]
  - Headache [Not Recovered/Not Resolved]
  - Skin ulcer [Not Recovered/Not Resolved]

NARRATIVE: CASE EVENT DATE: 20211203
